FAERS Safety Report 23850906 (Version 4)
Quarter: 2024Q3

REPORT INFORMATION
  Report Type: Spontaneous
  Country: SK (occurrence: SK)
  Receive Date: 20240514
  Receipt Date: 20240715
  Transmission Date: 20241017
  Serious: Yes (Other)
  Sender: ABBVIE
  Company Number: SK-ABBVIE-5756430

PATIENT
  Sex: Male
  Weight: 114 kg

DRUGS (26)
  1. HUMIRA [Suspect]
     Active Substance: ADALIMUMAB
     Indication: Psoriasis
     Route: 058
     Dates: start: 20130404, end: 20210604
  2. HUMIRA [Suspect]
     Active Substance: ADALIMUMAB
     Route: 058
     Dates: start: 2009
  3. SKYRIZI [Suspect]
     Active Substance: RISANKIZUMAB-RZAA
     Indication: Psoriasis
     Dosage: 2X75 MG
     Route: 058
     Dates: start: 20210623, end: 20240509
  4. DEXTROSE [Concomitant]
     Active Substance: DEXTROSE\DEXTROSE MONOHYDRATE
     Indication: Product used for unknown indication
     Dosage: 5%
  5. DEXAMETHASONE [Concomitant]
     Active Substance: DEXAMETHASONE
     Indication: Product used for unknown indication
     Route: 042
  6. GRANISETRON HYDROCHLORIDE [Concomitant]
     Active Substance: GRANISETRON HYDROCHLORIDE
     Indication: Antiemetic supportive care
     Dosage: FREQUENCY TEXT: 2X1 WHEN NAUSEA
     Route: 048
  7. WAMLOX [Concomitant]
     Indication: Hypertension
     Dosage: 5/160 MG?FREQUENCY TEXT: 1-0-0
  8. MAGNESIUM SULFATE [Concomitant]
     Active Substance: MAGNESIUM SULFATE\MAGNESIUM SULFATE HEPTAHYDRATE
     Indication: Product used for unknown indication
     Dosage: 10%
     Route: 042
  9. EMEGAR [Concomitant]
     Indication: Product used for unknown indication
  10. METFORMIN HYDROCHLORIDE [Concomitant]
     Active Substance: METFORMIN HYDROCHLORIDE
     Indication: Diabetes mellitus
     Dosage: FREQUENCY TEXT: 1-0-0
     Route: 048
  11. OXALIPLATIN [Concomitant]
     Active Substance: OXALIPLATIN
     Indication: Product used for unknown indication
     Dosage: FREQUENCY TEXT: 130 MG/M2/2 HOUR?DURATION TEXT: 2 CYCLES
     Route: 042
  12. OXALIPLATIN [Concomitant]
     Active Substance: OXALIPLATIN
     Indication: Product used for unknown indication
     Dosage: FREQUENCY TEXT: 130 MG/M2/2 HOUR?DURATION TEXT: 3 CYCLES
     Route: 042
  13. OXALIPLATIN [Concomitant]
     Active Substance: OXALIPLATIN
     Indication: Product used for unknown indication
     Dosage: FREQUENCY TEXT: 130 MG/M2/2 HOUR, DURATION TEXT: 4 CYCLES
     Route: 042
  14. KYTRIL [Concomitant]
     Active Substance: GRANISETRON HYDROCHLORIDE
     Indication: Product used for unknown indication
     Route: 042
  15. GLICLAZIDE [Concomitant]
     Active Substance: GLICLAZIDE
     Indication: Diabetes mellitus
     Dosage: FREQUENCY TEXT: 1-0-0
     Route: 048
  16. GLUTAMINE [Concomitant]
     Active Substance: GLUTAMINE
     Indication: Product used for unknown indication
     Dosage: ACE
  17. MAGNESIUM CARBONATE\MAGNESIUM OXIDE [Concomitant]
     Active Substance: MAGNESIUM CARBONATE\MAGNESIUM OXIDE
     Indication: Mineral supplementation
  18. MAGNESIUM CARBONATE\MAGNESIUM OXIDE [Concomitant]
     Active Substance: MAGNESIUM CARBONATE\MAGNESIUM OXIDE
     Indication: Mineral supplementation
     Dosage: FREQUENCY TEXT: IN DIFFICULTIES
  19. CAPECITABINE [Concomitant]
     Active Substance: CAPECITABINE
     Indication: Colorectal cancer
     Dosage: FREQUENCY TEXT: 1000 MG/M2 2X PER DAY?DURATION TEXT: 2 CYCLES
  20. CAPECITABINE [Concomitant]
     Active Substance: CAPECITABINE
     Indication: Colorectal cancer
     Dosage: FREQUENCY TEXT: 1000 MG/M2 2X PER DAY ?DURATION TEXT: 3 CYCLES
  21. CAPECITABINE [Concomitant]
     Active Substance: CAPECITABINE
     Indication: Colorectal cancer
     Dosage: FREQUENCY TEXT: 2-0-2 WITHIN 30 MINUTES AFTER EATING?DURATION TEXT: FOR 14 DAYS THAN 7 DAYS BREAK
  22. CAPECITABINE [Concomitant]
     Active Substance: CAPECITABINE
     Indication: Colorectal cancer
     Dosage: FREQUENCY TEXT: 4-0-4 WITHIN 30 MINUTES AFTER EATING?DURATION TEXT: FOR 14 DAYS THAN 7 DAYS BREAK
  23. CAPECITABINE [Concomitant]
     Active Substance: CAPECITABINE
     Indication: Colorectal cancer
     Dosage: FREQUENCY TEXT: 1000 MG/M2 2X PER DAYDURATION TEXT: DAY1-DAY14, PAUSE 21 DAYS
  24. IMODIUM [Concomitant]
     Active Substance: LOPERAMIDE HYDROCHLORIDE
     Indication: Diarrhoea
     Dosage: 2/125 MG
  25. IMODIUM [Concomitant]
     Active Substance: LOPERAMIDE HYDROCHLORIDE
     Indication: Diarrhoea
     Dosage: FREQUENCY TEXT: 3X 1 CPS WHEN DIARRHEA
  26. ATROPINE SULFATE\DIPHENOXYLATE HYDROCHLORIDE [Concomitant]
     Active Substance: ATROPINE SULFATE\DIPHENOXYLATE HYDROCHLORIDE
     Indication: Product used for unknown indication
     Dosage: FREQUENCY TEXT: 20 X 2.5 MILLIGRAMS

REACTIONS (4)
  - Intestinal adenocarcinoma [Unknown]
  - Diarrhoea [Unknown]
  - Rectal adenocarcinoma [Unknown]
  - Adenocarcinoma of colon [Unknown]
